FAERS Safety Report 4282437-7 (Version None)
Quarter: 2004Q1

REPORT INFORMATION
  Report Type: 
  Country: None (occurrence: None)
  Receive Date: 20040116
  Receipt Date: 20030916
  Transmission Date: 20041129
  Serious: No
  Sender: FDA-Public Use
  Company Number: 03P-163-0233794-00

PATIENT
  Sex: 0

DRUGS (1)
  1. MERIDIA [Suspect]

REACTIONS (1)
  - MYOCARDIAL INFARCTION [None]
